FAERS Safety Report 6807855-1 (Version None)
Quarter: 2010Q2

REPORT INFORMATION
  Report Type: 
  Country: None (occurrence: None)
  Receive Date: 20100629
  Receipt Date: 20090118
  Transmission Date: 20101027
  Serious: No
  Sender: FDA-Public Use
  Company Number: US-PFIZER INC-2008150540

PATIENT
  Sex: Female
  Weight: 65.77 kg

DRUGS (5)
  1. ARTHROTEC [Suspect]
     Indication: MONARTHRITIS
     Dosage: 75 MG, 1X/DAY
     Dates: start: 20081124, end: 20081201
  2. METFORMIN HYDROCHLORIDE [Concomitant]
     Indication: DIABETES MELLITUS
     Dosage: UNK
  3. GLIMEPIRIDE [Concomitant]
     Indication: DIABETES MELLITUS
     Dosage: UNK
  4. ENALAPRIL MALEATE [Concomitant]
     Dosage: UNK
  5. METOPROLOL TARTRATE [Concomitant]
     Dosage: UNK

REACTIONS (6)
  - BURNING SENSATION [None]
  - EYE IRRITATION [None]
  - EYE SWELLING [None]
  - MALAISE [None]
  - RASH PRURITIC [None]
  - SWELLING FACE [None]
